FAERS Safety Report 14654354 (Version 2)
Quarter: 2018Q3

REPORT INFORMATION
  Report Type: Spontaneous
  Country: US (occurrence: US)
  Receive Date: 20180319
  Receipt Date: 20180904
  Transmission Date: 20181010
  Serious: Yes (Other)
  Sender: FDA-Public Use
  Company Number: US-ASTRAZENECA-2018SE31969

PATIENT
  Age: 44 Year
  Sex: Female

DRUGS (130)
  1. DIAZEPAM. [Concomitant]
     Active Substance: DIAZEPAM
     Route: 048
     Dates: start: 20091112
  2. CEFDINIR. [Concomitant]
     Active Substance: CEFDINIR
     Route: 048
     Dates: start: 20100410
  3. SPIRIVA [Concomitant]
     Active Substance: TIOTROPIUM BROMIDE MONOHYDRATE
     Dosage: INHALE 1 CAPSULE IN HANDHELD DEVICE ONCE DAILY
     Route: 048
     Dates: start: 20150320
  4. FLUTICASONE PROPIONATE. [Concomitant]
     Active Substance: FLUTICASONE PROPIONATE
     Dosage: 1?2 SPRAYS EACH NOSTRIL ONCE DAILY AS DIRECTED
     Dates: start: 20160322
  5. CLOBETASOL [Concomitant]
     Active Substance: CLOBETASOL
     Dosage: APPLY TWICE DAILY TO RASH UP TO 2 WEEKS/MONTH AS NEEDED
     Dates: start: 20070314
  6. PRILOSEC [Suspect]
     Active Substance: OMEPRAZOLE MAGNESIUM
     Indication: GASTROOESOPHAGEAL REFLUX DISEASE
     Dosage: GENERIC (OMEPRAZOLE)
     Route: 048
     Dates: start: 20150703
  7. PREVACID [Suspect]
     Active Substance: LANSOPRAZOLE
     Indication: GASTROOESOPHAGEAL REFLUX DISEASE
     Route: 048
     Dates: start: 20041103
  8. PREVACID [Suspect]
     Active Substance: LANSOPRAZOLE
     Indication: GASTROOESOPHAGEAL REFLUX DISEASE
     Route: 065
     Dates: start: 2004, end: 2016
  9. WELLBUTRIN [Concomitant]
     Active Substance: BUPROPION HYDROCHLORIDE
     Indication: SMOKING CESSATION THERAPY
     Dates: start: 2004
  10. HYDROCODONE [Concomitant]
     Active Substance: HYDROCODONE
     Indication: PAIN
     Dates: start: 2009, end: 2010
  11. METHOCARBAMOL. [Concomitant]
     Active Substance: METHOCARBAMOL
     Route: 048
     Dates: start: 20040226
  12. ALBUTEROL. [Concomitant]
     Active Substance: ALBUTEROL
     Dosage: INHALER?0.83 MG/ML SOLUTION? USE 1 VIAL IN NEBULIZER EVERY 6 HOURS AS NEEDED
     Dates: start: 20040507
  13. ZITHROMAX [Concomitant]
     Active Substance: AZITHROMYCIN DIHYDRATE
     Dosage: AZITHROMYCIN? TAKE 2 TABLETS ON DAY 1 AND 1 TABLET ON DAYS 2?5
     Route: 048
     Dates: start: 20160208
  14. CEPHALEXIN. [Concomitant]
     Active Substance: CEPHALEXIN
     Route: 048
     Dates: start: 20061114
  15. CLONAZEPAM. [Concomitant]
     Active Substance: CLONAZEPAM
     Route: 048
     Dates: start: 20080212
  16. SPECTRACEF [Concomitant]
     Active Substance: CEFDITOREN PIVOXIL
     Route: 048
     Dates: start: 20081209
  17. SULFAMETHOXAZOLE [Concomitant]
     Active Substance: SULFAMETHOXAZOLE
     Route: 048
     Dates: start: 20100515
  18. PREVACID [Suspect]
     Active Substance: LANSOPRAZOLE
     Indication: GASTROOESOPHAGEAL REFLUX DISEASE
     Route: 065
     Dates: start: 2004, end: 2006
  19. PROTONIX [Suspect]
     Active Substance: PANTOPRAZOLE SODIUM
     Indication: GASTROOESOPHAGEAL REFLUX DISEASE
     Dosage: 2008,2018
     Route: 065
  20. PROTONIX [Suspect]
     Active Substance: PANTOPRAZOLE SODIUM
     Indication: GASTROOESOPHAGEAL REFLUX DISEASE
     Dosage: GENERIC?PANTOPRAZOLE SOD DR? TAKE ONE TABLET DAILY
     Route: 048
     Dates: start: 20150420
  21. WELLBUTRIN [Concomitant]
     Active Substance: BUPROPION HYDROCHLORIDE
     Indication: SMOKING CESSATION THERAPY
     Dosage: SR 150M
     Route: 048
     Dates: start: 20040102
  22. OXYCODONE [Concomitant]
     Active Substance: OXYCODONE
     Indication: PAIN
     Dates: start: 2005, end: 2008
  23. BENZONATATE. [Concomitant]
     Active Substance: BENZONATATE
     Indication: COUGH
     Route: 048
     Dates: start: 20150505
  24. GABAPENTIN. [Concomitant]
     Active Substance: GABAPENTIN
     Indication: NEURALGIA
     Route: 048
     Dates: start: 20150407
  25. FAMOTIDINE. [Concomitant]
     Active Substance: FAMOTIDINE
     Route: 065
  26. RANITIDINE. [Concomitant]
     Active Substance: RANITIDINE
     Dosage: GENERIC?2015,2018
  27. MACROBID [Concomitant]
     Active Substance: NITROFURANTOIN\NITROFURANTOIN MONOHYDRATE
     Dosage: NITROFURANT .. MON/M
     Route: 048
     Dates: start: 20051025
  28. HYDROCODONE/ACETAMINOPHEN [Concomitant]
     Active Substance: ACETAMINOPHEN\HYDROCODONE
     Route: 048
     Dates: start: 20040120
  29. TORSEMIDE. [Concomitant]
     Active Substance: TORSEMIDE
     Dosage: ONCE A DAY PRN
     Route: 048
     Dates: start: 20040226
  30. AUGMENTIN [Concomitant]
     Active Substance: AMOXICILLIN\CLAVULANATE POTASSIUM
     Dosage: AMOXICILLIN/CLAV
     Route: 048
     Dates: start: 20080728
  31. LORAZEPAM. [Concomitant]
     Active Substance: LORAZEPAM
     Route: 048
     Dates: start: 20050411
  32. PROPOXYPHENE/APAP [Concomitant]
     Route: 048
     Dates: start: 20050509
  33. ZITHROMAX [Concomitant]
     Active Substance: AZITHROMYCIN DIHYDRATE
     Dosage: AZITHROMYCIN
     Dates: start: 20090323
  34. DURAGESIC [Concomitant]
     Active Substance: FENTANYL
     Dosage: 75UG/H
     Dates: start: 20060104
  35. MEGESTROL [Concomitant]
     Active Substance: MEGESTROL
     Route: 048
     Dates: start: 20060921
  36. NYSTATIN. [Concomitant]
     Active Substance: NYSTATIN
     Dates: start: 20070626
  37. CYMBALTA [Concomitant]
     Active Substance: DULOXETINE HYDROCHLORIDE
     Route: 048
     Dates: start: 20080515
  38. BROMFED?DM [Concomitant]
     Active Substance: BROMPHENIRAMINE MALEATE\DEXTROMETHORPHAN HYDROBROMIDE\PSEUDOEPHEDRINE HYDROCHLORIDE
     Route: 048
     Dates: start: 20080912
  39. NAPROXEN. [Concomitant]
     Active Substance: NAPROXEN
     Route: 048
     Dates: start: 20130911
  40. MONTELUKAST SODIUM. [Concomitant]
     Active Substance: MONTELUKAST SODIUM
     Route: 048
     Dates: start: 20150407
  41. NEXIUM [Suspect]
     Active Substance: ESOMEPRAZOLE MAGNESIUM
     Indication: GASTROOESOPHAGEAL REFLUX DISEASE
     Route: 048
     Dates: start: 2004, end: 2016
  42. PRILOSEC [Suspect]
     Active Substance: OMEPRAZOLE MAGNESIUM
     Indication: GASTROOESOPHAGEAL REFLUX DISEASE
     Route: 048
  43. BACLOFEN. [Concomitant]
     Active Substance: BACLOFEN
     Indication: MUSCLE SPASMS
     Route: 048
     Dates: start: 20150323
  44. RANITIDINE. [Concomitant]
     Active Substance: RANITIDINE
     Dosage: GENERIC?TAKE ONE TABLET DAILY
     Route: 048
     Dates: start: 20150703
  45. CIPROFLOXACIN. [Concomitant]
     Active Substance: CIPROFLOXACIN
     Route: 048
     Dates: start: 20040120
  46. TOPAMAX [Concomitant]
     Active Substance: TOPIRAMATE
     Route: 048
     Dates: start: 20040202
  47. ALBUTEROL. [Concomitant]
     Active Substance: ALBUTEROL
     Dosage: VENTOLIN HFA INHAL
     Dates: start: 20090203
  48. LYRICA [Concomitant]
     Active Substance: PREGABALIN
     Route: 048
     Dates: start: 20060127
  49. IPRATROPIUM [Concomitant]
     Active Substance: IPRATROPIUM
     Dates: start: 20071003
  50. MIRTAZAPINE. [Concomitant]
     Active Substance: MIRTAZAPINE
     Route: 048
     Dates: start: 20080212
  51. ZOLPIDEM [Concomitant]
     Active Substance: ZOLPIDEM\ZOLPIDEM TARTRATE
     Route: 048
     Dates: start: 20080821
  52. SEROQUEL [Concomitant]
     Active Substance: QUETIAPINE FUMARATE
     Route: 048
     Dates: start: 20081029
  53. ONDANSETRON [Concomitant]
     Active Substance: ONDANSETRON
     Indication: NAUSEA
     Dosage: DISSOLVE 1 TABLET BY MOUTH THREE TIMES DAILY AS NEEDED
     Route: 048
     Dates: start: 20091005
  54. CYCLOBENZAPRINE. [Concomitant]
     Active Substance: CYCLOBENZAPRINE
     Route: 048
     Dates: start: 20100222
  55. TRAZODONE [Concomitant]
     Active Substance: TRAZODONE HYDROCHLORIDE
     Route: 048
     Dates: start: 20150320
  56. CETIRIZINE HYDROCHLORIDE. [Concomitant]
     Active Substance: CETIRIZINE HYDROCHLORIDE
     Route: 048
     Dates: start: 20160308
  57. PRILOSEC [Suspect]
     Active Substance: OMEPRAZOLE MAGNESIUM
     Indication: GASTROOESOPHAGEAL REFLUX DISEASE
     Dosage: GENERIC (OMEPRAZOLE)
     Route: 048
     Dates: start: 2015
  58. WELLBUTRIN [Concomitant]
     Active Substance: BUPROPION HYDROCHLORIDE
     Indication: SMOKING CESSATION THERAPY
     Dosage: XL 150M
     Route: 048
     Dates: start: 20040102
  59. OXYCODONE [Concomitant]
     Active Substance: OXYCODONE
     Indication: PAIN
     Route: 048
     Dates: start: 20050411
  60. DICYCLOMINE [Concomitant]
     Active Substance: DICYCLOMINE HYDROCHLORIDE
     Indication: IRRITABLE BOWEL SYNDROME
     Dates: start: 2016
  61. DICYCLOMINE [Concomitant]
     Active Substance: DICYCLOMINE HYDROCHLORIDE
     Indication: IRRITABLE BOWEL SYNDROME
     Route: 048
     Dates: start: 20160208
  62. METHYLPREDNISOLONE. [Concomitant]
     Active Substance: METHYLPREDNISOLONE
     Dosage: USE AS DIRECTED ON PACKAGE
     Route: 048
     Dates: start: 20040102
  63. MACROBID [Concomitant]
     Active Substance: NITROFURANTOIN\NITROFURANTOIN MONOHYDRATE
     Route: 048
     Dates: start: 20040120
  64. CARAFATE [Concomitant]
     Active Substance: SUCRALFATE
     Route: 048
     Dates: start: 20040706
  65. HISTEX [Concomitant]
     Active Substance: CHLORPHENIRAMINE MALEATE\PSEUDOEPHEDRINE HYDROCHLORIDE
     Route: 048
     Dates: start: 20050117
  66. LIDOCAINE HYDROCHLORIDE. [Concomitant]
     Active Substance: LIDOCAINE HYDROCHLORIDE
     Dates: start: 20050316
  67. SUBOXONE [Concomitant]
     Active Substance: BUPRENORPHINE HYDROCHLORIDE\NALOXONE HYDROCHLORIDE
     Route: 048
     Dates: start: 20090220
  68. HYDROXY PAM [Concomitant]
     Route: 048
     Dates: start: 20090813
  69. ETODOLAC. [Concomitant]
     Active Substance: ETODOLAC
     Route: 048
     Dates: start: 20101207
  70. QVAR [Concomitant]
     Active Substance: BECLOMETHASONE DIPROPIONATE
     Dosage: 80 MCG INHALE
     Dates: start: 20130304
  71. PENTAZOCINE?NALOXO [Concomitant]
     Route: 048
     Dates: start: 20140728
  72. SYMBICORT [Concomitant]
     Active Substance: BUDESONIDE\FORMOTEROL FUMARATE DIHYDRATE
     Dosage: 160/4.5?MCG INHAL?INHALE 2 PUFFS TWICE DAILY
     Dates: start: 20150320
  73. NASONEX [Concomitant]
     Active Substance: MOMETASONE FUROATE
     Dosage: NASAL SPRAY
     Dates: start: 20150407
  74. BETAMETHASONE. [Concomitant]
     Active Substance: BETAMETHASONE
     Dates: start: 20160531
  75. PROTONIX [Suspect]
     Active Substance: PANTOPRAZOLE SODIUM
     Indication: GASTROOESOPHAGEAL REFLUX DISEASE
     Dosage: GENERIC (PANTOPRAZOLE)
     Route: 065
     Dates: start: 2015, end: 2016
  76. PREVPAC [Suspect]
     Active Substance: AMOXICILLIN\CLARITHROMYCIN\LANSOPRAZOLE
     Indication: GASTROOESOPHAGEAL REFLUX DISEASE
     Route: 065
     Dates: start: 2005
  77. ADVAIR DISKUS [Concomitant]
     Active Substance: FLUTICASONE PROPIONATE\SALMETEROL XINAFOATE
     Dosage: 250/50
     Dates: start: 20040507
  78. CIPRODEX [Concomitant]
     Active Substance: CIPROFLOXACIN HYDROCHLORIDE\DEXAMETHASONE
     Dosage: OTIC SUSP
     Dates: start: 20050113
  79. LIDOCAINE/PRILOCAI [Concomitant]
     Dates: start: 20050314
  80. ZITHROMAX [Concomitant]
     Active Substance: AZITHROMYCIN DIHYDRATE
     Route: 048
     Dates: start: 20050729
  81. XOPENEX [Concomitant]
     Active Substance: LEVALBUTEROL HYDROCHLORIDE
     Dosage: HFA SEPRAC
     Dates: start: 20070118
  82. EFFEXOR [Concomitant]
     Active Substance: VENLAFAXINE HYDROCHLORIDE
     Dosage: XR
     Route: 048
     Dates: start: 20070120
  83. METOCLOPRAMIDE. [Concomitant]
     Active Substance: METOCLOPRAMIDE
     Route: 048
     Dates: start: 20080507
  84. NARATRIPTAN HYDROCHLORIDE. [Concomitant]
     Active Substance: NARATRIPTAN HYDROCHLORIDE
     Route: 048
     Dates: start: 20110120
  85. SILVER SULFADIAZIN [Concomitant]
     Active Substance: SILVER SULFADIAZINE
     Dates: start: 20120105
  86. PROCHLORPERAZINE. [Concomitant]
     Active Substance: PROCHLORPERAZINE
     Route: 048
     Dates: start: 20140109
  87. NEXIUM [Suspect]
     Active Substance: ESOMEPRAZOLE MAGNESIUM
     Indication: GASTROOESOPHAGEAL REFLUX DISEASE
     Route: 048
     Dates: start: 20070402
  88. BENZONATATE. [Concomitant]
     Active Substance: BENZONATATE
     Indication: COUGH
     Dates: start: 2015, end: 2016
  89. FAMOTIDINE. [Concomitant]
     Active Substance: FAMOTIDINE
     Dosage: PEPCID AC (OTC)
     Route: 065
  90. CELEXA [Concomitant]
     Active Substance: CITALOPRAM HYDROBROMIDE
     Dosage: CITALOPRAM HER
     Route: 048
     Dates: start: 20050113
  91. IMITREX [Concomitant]
     Active Substance: SUMATRIPTAN SUCCINATE
     Route: 048
     Dates: start: 20040202
  92. POTASSIUM CHLORIDE. [Concomitant]
     Active Substance: POTASSIUM CHLORIDE
     Dosage: KLOR?CON
     Route: 048
     Dates: start: 20051003
  93. MECLIZINE [Concomitant]
     Active Substance: MECLIZINE HYDROCHLORIDE
     Route: 048
     Dates: start: 20040519
  94. NIASPAN [Concomitant]
     Active Substance: NIACIN
     Route: 048
     Dates: start: 20040610
  95. DEXAMETHASONE. [Concomitant]
     Active Substance: DEXAMETHASONE
     Route: 048
     Dates: start: 20050303
  96. OXAPROZIN. [Concomitant]
     Active Substance: OXAPROZIN
     Route: 048
     Dates: start: 20070120
  97. TRIAMCINOLONE [Concomitant]
     Active Substance: TRIAMCINOLONE
     Dosage: APPY TO AFFECTED AREA(S) THREE TIMES DAILY AS NEEDED WITH (400 MLS) OF LUBRIDERM LOTION
     Dates: start: 20070314
  98. HYDROXYZINE [Concomitant]
     Active Substance: HYDROXYZINE HYDROCHLORIDE
     Route: 048
     Dates: start: 20070703
  99. AMOXICILLIN. [Concomitant]
     Active Substance: AMOXICILLIN
     Route: 048
     Dates: start: 20071206
  100. INVEGA [Concomitant]
     Active Substance: PALIPERIDONE
     Route: 048
     Dates: start: 20080401
  101. ENDOCET [Concomitant]
     Active Substance: ACETAMINOPHEN\OXYCODONE HYDROCHLORIDE
     Dosage: 7.5/500MG
     Route: 048
     Dates: start: 20081222
  102. TERCONAZOLE. [Concomitant]
     Active Substance: TERCONAZOLE
     Dates: start: 20150915
  103. PRENATAL [Concomitant]
     Active Substance: VITAMINS
     Route: 048
     Dates: start: 20160521
  104. PREVPAC [Suspect]
     Active Substance: AMOXICILLIN\CLARITHROMYCIN\LANSOPRAZOLE
     Indication: GASTROOESOPHAGEAL REFLUX DISEASE
     Route: 065
     Dates: start: 2004, end: 2016
  105. BACLOFEN. [Concomitant]
     Active Substance: BACLOFEN
     Indication: MUSCLE SPASMS
     Dates: start: 2015, end: 2016
  106. POTASSIUM CHLORIDE. [Concomitant]
     Active Substance: POTASSIUM CHLORIDE
     Route: 048
     Dates: start: 20040415
  107. AUGMENTIN [Concomitant]
     Active Substance: AMOXICILLIN\CLAVULANATE POTASSIUM
     Dosage: XR 1000
     Route: 048
     Dates: start: 20040507
  108. PROMETHAZINE [Concomitant]
     Active Substance: PROMETHAZINE\PROMETHAZINE HYDROCHLORIDE
     Dosage: 1.0DF EVERY 4 ? 6 HOURS
     Route: 048
     Dates: start: 20040507
  109. BIAXIN [Concomitant]
     Active Substance: CLARITHROMYCIN
     Route: 048
     Dates: start: 20050113
  110. LEVAQUIN [Concomitant]
     Active Substance: LEVOFLOXACIN
     Route: 048
     Dates: start: 20050121
  111. TEMAZEPAM. [Concomitant]
     Active Substance: TEMAZEPAM
     Route: 048
     Dates: start: 20050729
  112. NYST/TRIAM [Concomitant]
     Dates: start: 20070626
  113. FUROSEMIDE. [Concomitant]
     Active Substance: FUROSEMIDE
     Route: 048
     Dates: start: 20080403
  114. ZOLPIDEM [Concomitant]
     Active Substance: ZOLPIDEM\ZOLPIDEM TARTRATE
     Dosage: ZOLPIDEM TARTRATE
     Route: 048
     Dates: start: 20100126
  115. ONDANSETRON [Concomitant]
     Active Substance: ONDANSETRON
     Indication: VOMITING
     Dosage: DISSOLVE 1 TABLET BY MOUTH THREE TIMES DAILY AS NEEDED
     Route: 048
     Dates: start: 20091005
  116. ALLOPURINOL. [Concomitant]
     Active Substance: ALLOPURINOL
     Route: 048
     Dates: start: 20150617
  117. NEXIUM [Suspect]
     Active Substance: ESOMEPRAZOLE MAGNESIUM
     Indication: GASTROOESOPHAGEAL REFLUX DISEASE
     Route: 048
     Dates: start: 2007, end: 2009
  118. PREVPAC [Suspect]
     Active Substance: AMOXICILLIN\CLARITHROMYCIN\LANSOPRAZOLE
     Indication: GASTROOESOPHAGEAL REFLUX DISEASE
     Route: 065
     Dates: start: 20051117
  119. GABAPENTIN. [Concomitant]
     Active Substance: GABAPENTIN
     Indication: NEURALGIA
     Dates: start: 2015, end: 2016
  120. CELEXA [Concomitant]
     Active Substance: CITALOPRAM HYDROBROMIDE
     Route: 048
     Dates: start: 20040102
  121. BETAMETHASONE/CLOT [Concomitant]
     Dates: start: 20040324
  122. POTASSIUM CHLORIDE. [Concomitant]
     Active Substance: POTASSIUM CHLORIDE
     Dosage: MICRO?K
     Route: 048
     Dates: start: 20090205
  123. ALBUTEROL. [Concomitant]
     Active Substance: ALBUTEROL
     Dosage: PROAIR HFA? 90 MCG INH 8.5? INHALE 2 PUFFS 4 TIMES DAILY
     Dates: start: 20111230
  124. IBUPROFEN. [Concomitant]
     Active Substance: IBUPROFEN
     Dosage: 250/50
     Route: 048
     Dates: start: 20040507
  125. IBUPROFEN. [Concomitant]
     Active Substance: IBUPROFEN
     Route: 048
     Dates: start: 20160208
  126. AVELOX [Concomitant]
     Active Substance: MOXIFLOXACIN HYDROCHLORIDE
     Route: 048
     Dates: start: 20040519
  127. AMITRIPTYLINE [Concomitant]
     Active Substance: AMITRIPTYLINE
     Route: 048
     Dates: start: 20050120
  128. POLYETHYLENE GLYCOL [Concomitant]
     Active Substance: POLYETHYLENE GLYCOLS
     Dates: start: 20070109
  129. PHENAZOPYRIDINE. [Concomitant]
     Active Substance: PHENAZOPYRIDINE
     Route: 048
     Dates: start: 20071206
  130. SODIUM POLYSTYRENE SULFONATE. [Concomitant]
     Active Substance: SODIUM POLYSTYRENE SULFONATE
     Dates: start: 20081223

REACTIONS (2)
  - Renal failure [Not Recovered/Not Resolved]
  - Acute kidney injury [Not Recovered/Not Resolved]

NARRATIVE: CASE EVENT DATE: 2008
